FAERS Safety Report 18432006 (Version 4)
Quarter: 2021Q2

REPORT INFORMATION
  Report Type: Report from Study
  Country: JP (occurrence: JP)
  Receive Date: 20201027
  Receipt Date: 20210624
  Transmission Date: 20210717
  Serious: Yes (Hospitalization, Other)
  Sender: FDA-Public Use
  Company Number: JP-PFIZER INC-2020-07338

PATIENT
  Age: 72 Year
  Sex: Male
  Weight: 67.7 kg

DRUGS (8)
  1. MEKTOVI [Suspect]
     Active Substance: BINIMETINIB
     Indication: MALIGNANT MELANOMA
     Dosage: 90 MG, 1X/DAY
     Route: 048
     Dates: start: 20200206, end: 20200207
  2. MEKTOVI [Suspect]
     Active Substance: BINIMETINIB
     Dosage: 60 MG, EVERYDAY
     Route: 048
     Dates: start: 20200224, end: 20200326
  3. BRAFTOVI [Suspect]
     Active Substance: ENCORAFENIB
     Dosage: 450 MG, EVERYDAY
     Route: 048
     Dates: start: 20200217, end: 20200218
  4. BRAFTOVI [Suspect]
     Active Substance: ENCORAFENIB
     Dosage: 200 MG, EVERYDAY
     Route: 048
     Dates: start: 20200417, end: 20200806
  5. BRAFTOVI [Suspect]
     Active Substance: ENCORAFENIB
     Indication: MALIGNANT MELANOMA
     Dosage: 450 MG, EVERYDAY
     Route: 048
     Dates: start: 20200206, end: 20200207
  6. MEKTOVI [Suspect]
     Active Substance: BINIMETINIB
     Dosage: 90 MG, EVERYDAY
     Route: 048
     Dates: start: 20200217, end: 20200218
  7. MEKTOVI [Suspect]
     Active Substance: BINIMETINIB
     Dosage: 30 MG, EVERYDAY
     Route: 048
     Dates: start: 20200417, end: 20200806
  8. BRAFTOVI [Suspect]
     Active Substance: ENCORAFENIB
     Dosage: 300 MG, EVERYDAY
     Route: 048
     Dates: start: 20200224, end: 20200326

REACTIONS (10)
  - Malaise [Recovering/Resolving]
  - Serous retinal detachment [Recovering/Resolving]
  - Blood creatine phosphokinase increased [Unknown]
  - Asthenia [Recovering/Resolving]
  - Rhabdomyolysis [Recovered/Resolved]
  - Conjunctivitis [Recovered/Resolved]
  - Myoglobin blood increased [Unknown]
  - Erythema nodosum [Recovered/Resolved]
  - C-reactive protein increased [Recovering/Resolving]
  - Drug-induced liver injury [Recovered/Resolved]

NARRATIVE: CASE EVENT DATE: 20200207
